FAERS Safety Report 18785132 (Version 1)
Quarter: 2021Q1

REPORT INFORMATION
  Report Type: Report from Study
  Country: JP (occurrence: JP)
  Receive Date: 20210125
  Receipt Date: 20210125
  Transmission Date: 20210419
  Serious: Yes (Other)
  Sender: FDA-Public Use
  Company Number: JP-UCBSA-2021002196

PATIENT
  Age: 94 Year
  Sex: Female
  Weight: 49.5 kg

DRUGS (13)
  1. LACOSAMIDE. [Suspect]
     Active Substance: LACOSAMIDE
     Dosage: 50 MILLIGRAM, 2X/DAY (BID)
     Route: 048
     Dates: end: 20200114
  2. E KEPPRA [Concomitant]
     Active Substance: LEVETIRACETAM
     Indication: PARTIAL SEIZURES WITH SECONDARY GENERALISATION
     Dosage: 1000 MG DAILY
     Route: 048
     Dates: end: 20191217
  3. EL?SOLUTION NO.3 [GLUCOSE;POTASSIUM CHLORIDE;POTASSIUM PHOSPHATE DIBAS [Concomitant]
     Indication: PRODUCT USED FOR UNKNOWN INDICATION
     Dosage: 1000 ML DAILY
     Route: 042
     Dates: end: 20191221
  4. EL?SOLUTION NO.3 [GLUCOSE;POTASSIUM CHLORIDE;POTASSIUM PHOSPHATE DIBAS [Concomitant]
     Dosage: 1000 ML DAILY
     Route: 042
     Dates: start: 20200104, end: 20200110
  5. SENNOSIDES. [Concomitant]
     Active Substance: SENNOSIDES
     Indication: PRODUCT USED FOR UNKNOWN INDICATION
     Dosage: 24 MG DAILY
     Route: 048
     Dates: start: 20191221, end: 20200108
  6. LACOSAMIDE. [Suspect]
     Active Substance: LACOSAMIDE
     Indication: PARTIAL SEIZURES WITH SECONDARY GENERALISATION
     Dosage: 50 MILLIGRAM, 2X/DAY (BID)
     Dates: start: 20191217, end: 20191230
  7. EL?SOLUTION NO.3 [GLUCOSE;POTASSIUM CHLORIDE;POTASSIUM PHOSPHATE DIBAS [Concomitant]
     Dosage: 500 ML DAILY
     Route: 042
     Dates: start: 20191222, end: 20200102
  8. E KEPPRA [Concomitant]
     Active Substance: LEVETIRACETAM
     Indication: PARTIAL SEIZURES WITH SECONDARY GENERALISATION
     Dosage: 1000 MG DAILY
     Route: 041
     Dates: end: 20191217
  9. ALEVIATIN [PHENYTOIN] [Concomitant]
     Active Substance: PHENYTOIN
     Indication: PARTIAL SEIZURES WITH SECONDARY GENERALISATION
     Dosage: 200 MG DAILY
     Route: 048
     Dates: start: 20191219, end: 20201225
  10. FOSTOIN [Concomitant]
     Active Substance: FOSPHENYTOIN SODIUM
     Indication: PARTIAL SEIZURES WITH SECONDARY GENERALISATION
     Dosage: 750 MG DAILY
     Route: 042
     Dates: end: 20191218
  11. PHENOBAL [PHENOBARBITAL] [Concomitant]
     Active Substance: PHENOBARBITAL
     Indication: PARTIAL SEIZURES WITH SECONDARY GENERALISATION
     Dosage: 200 MG DAILY
     Route: 042
     Dates: end: 20191217
  12. WYSTAL [Concomitant]
     Active Substance: CEFOPERAZONE SODIUM\SULBACTAM SODIUM
     Indication: PRODUCT USED FOR UNKNOWN INDICATION
     Dosage: 2 GRAM DAILY
     Route: 042
     Dates: end: 20191227
  13. EL?SOLUTION NO.3 [GLUCOSE;POTASSIUM CHLORIDE;POTASSIUM PHOSPHATE DIBAS [Concomitant]
     Dosage: 500 ML DAILY
     Route: 042
     Dates: start: 20200111, end: 20200113

REACTIONS (4)
  - Cardiac failure congestive [Recovered/Resolved]
  - Urinary tract infection [Recovered/Resolved]
  - Atrial fibrillation [Recovering/Resolving]
  - Off label use [Unknown]

NARRATIVE: CASE EVENT DATE: 20191217
